FAERS Safety Report 5794765-4 (Version None)
Quarter: 2008Q2

REPORT INFORMATION
  Report Type: 
  Country: None (occurrence: None)
  Receive Date: 20080630
  Receipt Date: 20080620
  Transmission Date: 20081010
  Serious: Yes (Hospitalization)
  Sender: FDA-Public Use
  Company Number: US-AMGEN-QUU274711

PATIENT
  Sex: Female
  Weight: 44.5 kg

DRUGS (22)
  1. ENBREL [Suspect]
     Indication: RHEUMATOID ARTHRITIS
     Route: 058
     Dates: start: 20050209
  2. NAPROXEN [Suspect]
  3. PREMPRO [Suspect]
  4. PLAQUENIL [Concomitant]
  5. BONIVA [Concomitant]
     Route: 042
     Dates: start: 20061103
  6. CYTOTEC [Concomitant]
  7. ENTOCORT EC [Concomitant]
  8. BENICAR [Concomitant]
  9. LEVOTHYROXINE SODIUM [Concomitant]
  10. TRAZODONE HCL [Concomitant]
  11. ZOLOFT [Concomitant]
  12. ADVAIR DISKUS 100/50 [Concomitant]
  13. TRIAMCINOLONE [Concomitant]
     Route: 048
  14. PULMICORT-100 [Concomitant]
     Route: 055
  15. ALBUTEROL [Concomitant]
     Route: 055
  16. FLONASE [Concomitant]
  17. SYMBICORT [Concomitant]
  18. ALLEGRA [Concomitant]
  19. ACIPHEX [Concomitant]
  20. PLAVIX [Concomitant]
  21. FOLIC ACID [Concomitant]
  22. CALCIUM WITH VITAMIN D [Concomitant]

REACTIONS (8)
  - BRONCHITIS [None]
  - ECCHYMOSIS [None]
  - ISCHAEMIC STROKE [None]
  - JOINT SWELLING [None]
  - NECK PAIN [None]
  - PAIN IN EXTREMITY [None]
  - PELVIC FRACTURE [None]
  - WEIGHT DECREASED [None]
